FAERS Safety Report 22010647 (Version 3)
Quarter: 2023Q2

REPORT INFORMATION
  Report Type: Spontaneous
  Country: KR (occurrence: KR)
  Receive Date: 20230220
  Receipt Date: 20230420
  Transmission Date: 20230722
  Serious: Yes (Hospitalization)
  Sender: FDA-Public Use
  Company Number: KR-BAYER-2023A018793

PATIENT
  Age: 52 Year
  Sex: Female

DRUGS (2)
  1. GADOLINIUM [Suspect]
     Active Substance: GADOLINIUM
     Dosage: UNK, ONCE
  2. PROPRANOLOL HYDROCHLORIDE [Suspect]
     Active Substance: PROPRANOLOL HYDROCHLORIDE

REACTIONS (4)
  - Acute respiratory distress syndrome [Recovered/Resolved]
  - Pulmonary oedema [Recovered/Resolved]
  - Shock [Recovered/Resolved]
  - Anaphylactoid reaction [Recovered/Resolved]
